FAERS Safety Report 16086167 (Version 2)
Quarter: 2019Q1

REPORT INFORMATION
  Report Type: Report from Study
  Country: ZA (occurrence: ZA)
  Receive Date: 20190318
  Receipt Date: 20190320
  Transmission Date: 20190418
  Serious: Yes (Life-Threatening)
  Sender: FDA-Public Use
  Company Number: ZA-SA-2018SA259937

PATIENT
  Age: 45 Year
  Sex: Female

DRUGS (9)
  1. INSULIN GLARGINE [Suspect]
     Active Substance: INSULIN GLARGINE
     Dosage: 31 UNITS AT BED TIME
     Dates: start: 20180912
  2. OPTISULIN [INSULIN GLARGINE] [Suspect]
     Active Substance: INSULIN GLARGINE
     Dosage: 30 IU, QD
     Dates: start: 20180826
  3. DIAGLUCIDE [Concomitant]
     Active Substance: GLICLAZIDE
     Dosage: 80 MG, QD(BEFORE BREAKFAST)
     Dates: start: 20180927
  4. INSULIN GLARGINE [Suspect]
     Active Substance: INSULIN GLARGINE
     Dosage: 30 U, HS
     Dates: start: 20180912
  5. OPTISULIN (INSULIN GLARGINE) [Suspect]
     Active Substance: INSULIN GLARGINE
     Dosage: 21 U, HS
     Dates: start: 20180920
  6. BAYER ASPIRIN [Concomitant]
     Active Substance: ASPIRIN
     Dosage: 5 MG, QD (AFTER BREAKFAST)
     Dates: start: 20180927
  7. INSULIN GLARGINE [Suspect]
     Active Substance: INSULIN GLARGINE
     Dosage: 30 U, HS
     Dates: start: 20180812
  8. CIPLAVASC [Concomitant]
     Active Substance: AMLODIPINE BESYLATE
     Dosage: UNK
     Dates: start: 20180927
  9. METFORMIN [Concomitant]
     Active Substance: METFORMIN HYDROCHLORIDE
     Dosage: 500 MG, TID (AFTER SUPPER, AFTER LUNCH,AFTER BREAKFAST)
     Dates: start: 20180927

REACTIONS (16)
  - Myalgia [Recovered/Resolved]
  - Asthenia [Recovered/Resolved]
  - Hypoglycaemia [Not Recovered/Not Resolved]
  - Unevaluable event [Not Recovered/Not Resolved]
  - Dizziness [Unknown]
  - Malaise [Recovered/Resolved]
  - Occupational exposure to product [Unknown]
  - Nervousness [Unknown]
  - Gait inability [Recovered/Resolved]
  - Headache [Recovered/Resolved]
  - Arthralgia [Recovered/Resolved]
  - Insomnia [Recovered/Resolved]
  - Product dose omission [Unknown]
  - Overdose [Unknown]
  - Blood glucose abnormal [Recovered/Resolved]
  - Intentional product misuse [Unknown]

NARRATIVE: CASE EVENT DATE: 20180818
